FAERS Safety Report 15546115 (Version 2)
Quarter: 2025Q2

REPORT INFORMATION
  Report Type: Report from Study
  Country: FR (occurrence: FR)
  Receive Date: 20181024
  Receipt Date: 20250414
  Transmission Date: 20250717
  Serious: Yes (Other)
  Sender: ELI LILLY AND CO
  Company Number: FR-IPSEN GROUP, RESEARCH AND DEVELOPMENT-2018-15376

PATIENT

DRUGS (1)
  1. SOMATROPIN [Suspect]
     Active Substance: SOMATROPIN
     Indication: Product used for unknown indication
     Dosage: UNK, WEEKLY (1/W)
     Route: 065

REACTIONS (1)
  - Creutzfeldt-Jakob disease [Unknown]
